FAERS Safety Report 6008993-6 (Version None)
Quarter: 2008Q4

REPORT INFORMATION
  Report Type: 
  Country: None (occurrence: None)
  Receive Date: 20081216
  Receipt Date: 20080821
  Transmission Date: 20090506
  Serious: Yes (Other)
  Sender: FDA-Public Use
  Company Number: 2008US001934

PATIENT
  Age: 64 Year
  Sex: Male

DRUGS (1)
  1. LEXISCAN [Suspect]
     Indication: CARDIAC STRESS TEST
     Dosage: IV NOS
     Route: 042
     Dates: start: 20080723, end: 20080724

REACTIONS (6)
  - CHEST DISCOMFORT [None]
  - HYPOTENSION [None]
  - LOSS OF CONSCIOUSNESS [None]
  - OFF LABEL USE [None]
  - PARAESTHESIA [None]
  - UNRESPONSIVE TO STIMULI [None]
